FAERS Safety Report 23677831 (Version 1)
Quarter: 2024Q1

REPORT INFORMATION
  Report Type: Spontaneous
  Country: FR (occurrence: FR)
  Receive Date: 20240327
  Receipt Date: 20240327
  Transmission Date: 20240409
  Serious: Yes (Hospitalization)
  Sender: FDA-Public Use
  Company Number: None

PATIENT
  Age: 27 Year
  Sex: Female
  Weight: 60 kg

DRUGS (11)
  1. ATRACURIUM BESYLATE [Suspect]
     Active Substance: ATRACURIUM BESYLATE
     Indication: Anaesthesia
     Dosage: 25 MG
     Route: 042
     Dates: start: 20231221, end: 20231221
  2. ATROPINE SULFATE [Suspect]
     Active Substance: ATROPINE SULFATE
     Indication: Anaesthesia
     Dosage: 1 MG
     Route: 042
     Dates: start: 20231221, end: 20231221
  3. SUFENTANIL [Suspect]
     Active Substance: SUFENTANIL
     Indication: Anaesthesia
     Dosage: 15 UG
     Route: 042
     Dates: start: 20231221, end: 20231221
  4. KETOPROFEN [Suspect]
     Active Substance: KETOPROFEN
     Indication: Anaesthesia
     Dosage: 100 MG
     Route: 042
     Dates: start: 20231221, end: 20231221
  5. ACUPAN [Suspect]
     Active Substance: NEFOPAM HYDROCHLORIDE
     Indication: Anaesthesia
     Dosage: 20 MG
     Route: 042
     Dates: start: 20231221, end: 20231221
  6. EPHEDRINE [Suspect]
     Active Substance: EPHEDRINE
     Indication: Anaesthesia
     Dosage: 9 MG
     Route: 042
     Dates: start: 20231221, end: 20231221
  7. ACETAMINOPHEN [Suspect]
     Active Substance: ACETAMINOPHEN
     Indication: Anaesthesia
     Dosage: 1 G
     Route: 042
     Dates: start: 20231221, end: 20231221
  8. NEOSTIGMINE BROMIDE [Suspect]
     Active Substance: NEOSTIGMINE BROMIDE
     Indication: Anaesthesia
     Dosage: 2.5 MG
     Route: 042
     Dates: start: 20231221, end: 20231221
  9. KETAMINE [Suspect]
     Active Substance: KETAMINE
     Indication: Anaesthesia
     Dosage: 20 MG
     Route: 042
     Dates: start: 20231221, end: 20231221
  10. DEXAMETHASONE [Suspect]
     Active Substance: DEXAMETHASONE
     Indication: Anaesthesia
     Dosage: 8 MG
     Route: 042
     Dates: start: 20231221, end: 20231221
  11. PROPOFOL [Suspect]
     Active Substance: PROPOFOL
     Indication: Anaesthesia
     Dosage: 400 MG
     Route: 042
     Dates: start: 20231221, end: 20231221

REACTIONS (1)
  - Chorea [Recovered/Resolved]

NARRATIVE: CASE EVENT DATE: 20231221
